FAERS Safety Report 10146839 (Version 1)
Quarter: 2014Q2

REPORT INFORMATION
  Report Type: Spontaneous
  Country: US (occurrence: None)
  Receive Date: 20140430
  Receipt Date: 20140430
  Transmission Date: 20141212
  Serious: Yes (Hospitalization)
  Sender: FDA-Public Use
  Company Number: None

PATIENT
  Age: 39 Year
  Sex: Female

DRUGS (24)
  1. VANCOMYCIN [Suspect]
     Indication: CELLULITIS
     Route: 042
     Dates: start: 20131119, end: 20131121
  2. ACETAMINOPHEN [Concomitant]
  3. AMLODIPINE [Concomitant]
  4. ASA [Concomitant]
  5. DIPHENHYDRAMINE [Concomitant]
  6. DOCUSATE [Concomitant]
  7. CYCLOBENZAPRINE [Concomitant]
  8. FLUTICASONE [Concomitant]
  9. SALMETEROL [Concomitant]
  10. FUROSEMIDE [Concomitant]
  11. GABAPENTIN [Concomitant]
  12. LANSOPRAZOLE [Concomitant]
  13. INSULIN GLARGINE [Concomitant]
  14. LORATADINE [Concomitant]
  15. LOSARTAN [Concomitant]
  16. MONTELUKAST [Concomitant]
  17. OXYBUTYNIN [Concomitant]
  18. PRAVASTATIN [Concomitant]
  19. PREDNISONE [Concomitant]
  20. SENNA [Concomitant]
  21. PIPERACILLIN/TAZOBACTAM [Concomitant]
  22. WARFARIN [Concomitant]
  23. PREGABALIN [Concomitant]
  24. DULOXETINE [Concomitant]

REACTIONS (3)
  - Blood creatinine increased [None]
  - Drug level increased [None]
  - Toxicity to various agents [None]
